FAERS Safety Report 6681051-3 (Version None)
Quarter: 2010Q2

REPORT INFORMATION
  Report Type: 
  Country: None (occurrence: None)
  Receive Date: 20100412
  Receipt Date: 20100331
  Transmission Date: 20101027
  Serious: Yes (Hospitalization)
  Sender: FDA-Public Use
  Company Number: 1000013117

PATIENT
  Age: 57 Year
  Sex: Female
  Weight: 66 kg

DRUGS (4)
  1. ESCITALOPRAM [Suspect]
     Dosage: 10 MG (10 MG, 1  IN 1 D), ORAL
     Route: 048
     Dates: start: 20060601
  2. PREVISCAN (TABLETS) [Suspect]
     Dosage: 20 MG (20 MG, 1 IN 1 D) ,ORAL
     Route: 048
     Dates: start: 20091117, end: 20091126
  3. ARIXTRA [Suspect]
     Indication: VENOUS THROMBOSIS
     Dosage: (1 DOSAGE FORMS), SUBCUTANE-
     Route: 058
     Dates: start: 20091116, end: 20091123
  4. LEVOTHYROX [Suspect]
     Indication: THYROID OPERATION
     Dosage: 1 DOSAGE FORMS (1 DOSAGE FORMS, 1 IN
     Dates: start: 19810101

REACTIONS (2)
  - MUSCLE HAEMORRHAGE [None]
  - SCIATICA [None]
